FAERS Safety Report 9993600 (Version 1)
Quarter: 2014Q1

REPORT INFORMATION
  Report Type: Spontaneous
  Country: FR (occurrence: FR)
  Receive Date: 20140310
  Receipt Date: 20140310
  Transmission Date: 20141002
  Serious: Yes (Death)
  Sender: FDA-Public Use
  Company Number: FR-B.I. PHARMACEUTICALS,INC./RIDGEFIELD-2014-BI-10333FF

PATIENT
  Age: 89 Year
  Sex: Female

DRUGS (9)
  1. PRADAXA [Suspect]
     Indication: ATRIAL FIBRILLATION
     Route: 065
     Dates: start: 201311, end: 201311
  2. CORDARONE [Suspect]
     Indication: ATRIAL FIBRILLATION
     Route: 048
     Dates: start: 201311, end: 201311
  3. ATENOL [Concomitant]
     Route: 048
  4. CORTANCYL [Concomitant]
     Route: 048
  5. LEXOMIL 12MG [Concomitant]
     Dosage: 6 MG
     Route: 065
  6. STILNOX 10MG [Concomitant]
     Route: 048
  7. COOLMETEC [Concomitant]
     Route: 048
  8. XATRAL [Concomitant]
     Route: 048
  9. EXELON [Concomitant]
     Route: 048

REACTIONS (1)
  - Shock haemorrhagic [Fatal]
